FAERS Safety Report 17659753 (Version 1)
Quarter: 2020Q2

REPORT INFORMATION
  Report Type: Spontaneous
  Country: US (occurrence: US)
  Receive Date: 20200413
  Receipt Date: 20200413
  Transmission Date: 20200713
  Serious: No
  Sender: FDA-Public Use
  Company Number: US-BION-008435

PATIENT
  Sex: Male

DRUGS (1)
  1. ALEVE [Suspect]
     Active Substance: NAPROXEN SODIUM
     Indication: GENITAL HERPES
     Route: 061

REACTIONS (2)
  - Wrong technique in product usage process [Not Recovered/Not Resolved]
  - Product use in unapproved indication [Not Recovered/Not Resolved]
